FAERS Safety Report 14656670 (Version 6)
Quarter: 2018Q3

REPORT INFORMATION
  Report Type: Spontaneous
  Country: CA (occurrence: CA)
  Receive Date: 20180319
  Receipt Date: 20180817
  Transmission Date: 20181010
  Serious: Yes (Other)
  Sender: FDA-Public Use
  Company Number: CA-CELLTRION INC.-2018CA018291

PATIENT

DRUGS (14)
  1. RABEPRAZOLE [Concomitant]
     Active Substance: RABEPRAZOLE
     Dosage: 20 MG, DAILY
     Route: 065
     Dates: start: 2008
  2. INFLECTRA [Suspect]
     Active Substance: INFLIXIMAB-DYYB
     Indication: RHEUMATOID ARTHRITIS
     Dosage: 200 MG/Q (EVERY) 0,2,6 WEEKS, THAN EVERY 8 WEEKS
     Route: 042
     Dates: start: 20180111
  3. SULFASALAZINE. [Concomitant]
     Active Substance: SULFASALAZINE
     Dosage: UNK
  4. PROPRANOLOL [Concomitant]
     Active Substance: PROPRANOLOL HYDROCHLORIDE
     Dosage: 10 MG, DAILY
     Route: 065
     Dates: start: 1998
  5. INFLECTRA [Suspect]
     Active Substance: INFLIXIMAB-DYYB
     Dosage: 200 MG/Q (EVERY) 0,2,6 WEEKS, THAN EVERY 8 WEEKS
     Route: 042
     Dates: start: 20180126
  6. SERTRALINE [Concomitant]
     Active Substance: SERTRALINE HYDROCHLORIDE
     Dosage: 200 MG, DAILY
     Route: 065
     Dates: start: 1998
  7. PROLIA [Concomitant]
     Active Substance: DENOSUMAB
     Dosage: UNK, TWICE A YEAR
     Route: 065
     Dates: start: 2015
  8. ZOPICLONE [Concomitant]
     Active Substance: ZOPICLONE
     Dosage: 3.7 MG (BEFORE BED)
     Route: 065
  9. CLONAZEPAM. [Concomitant]
     Active Substance: CLONAZEPAM
     Dosage: 0.5 MG, DAILY
     Route: 065
     Dates: start: 2008
  10. ELAVIL [Concomitant]
     Active Substance: AMITRIPTYLINE HYDROCHLORIDE
     Dosage: 250 MG, DAILY
     Route: 065
     Dates: start: 1998
  11. INFLECTRA [Suspect]
     Active Substance: INFLIXIMAB-DYYB
     Dosage: 200 MG/Q (EVERY) 0,2,6 WEEKS, THAN EVERY 8 WEEKS
     Route: 042
     Dates: start: 20180306, end: 20180306
  12. INFLECTRA [Suspect]
     Active Substance: INFLIXIMAB-DYYB
     Dosage: 300 MG EVERY 8 WEEKS;
     Route: 042
     Dates: start: 20180706
  13. INFLECTRA [Suspect]
     Active Substance: INFLIXIMAB-DYYB
     Dosage: 300 MG EVERY 8 WEEKS
     Route: 042
     Dates: start: 20180510, end: 20180706
  14. INFLECTRA [Suspect]
     Active Substance: INFLIXIMAB-DYYB
     Dosage: UNK
     Dates: start: 2017

REACTIONS (5)
  - Clostridium difficile infection [Unknown]
  - Blood pressure decreased [Unknown]
  - Drug prescribing error [Unknown]
  - Drug effect incomplete [Unknown]
  - Inappropriate schedule of drug administration [Unknown]

NARRATIVE: CASE EVENT DATE: 20180126
